FAERS Safety Report 9667956 (Version 1)
Quarter: 2013Q4

REPORT INFORMATION
  Report Type: Spontaneous
  Country: US (occurrence: US)
  Receive Date: 20131104
  Receipt Date: 20131104
  Transmission Date: 20140711
  Serious: Yes (Other)
  Sender: FDA-Public Use
  Company Number: US-GLAXOSMITHKLINE-A1044626A

PATIENT
  Age: 45 Year
  Sex: Male
  Weight: 70.9 kg

DRUGS (4)
  1. ADVAIR [Suspect]
     Indication: PRODUCT USED FOR UNKNOWN INDICATION
     Route: 055
     Dates: start: 20110606
  2. VENTOLIN HFA [Suspect]
     Indication: PRODUCT USED FOR UNKNOWN INDICATION
     Route: 055
     Dates: start: 201106
  3. SPIRIVA [Concomitant]
     Dates: start: 20120326
  4. SYMBICORT [Concomitant]
     Dates: start: 20120921

REACTIONS (3)
  - Disease progression [Recovering/Resolving]
  - Dyspnoea [Unknown]
  - Alpha-1 anti-trypsin deficiency [Unknown]
